FAERS Safety Report 7353782-3 (Version None)
Quarter: 2011Q1

REPORT INFORMATION
  Report Type: 
  Country: None (occurrence: None)
  Receive Date: 20110315
  Receipt Date: 20110311
  Transmission Date: 20110831
  Serious: Yes (Other)
  Sender: FDA-Public Use
  Company Number: US-PFIZER INC-2011025502

PATIENT
  Sex: Female
  Weight: 87.982 kg

DRUGS (12)
  1. ESCITALOPRAM [Concomitant]
     Dosage: 100 MG, 3X/DAY
  2. MAGNESIUM [Concomitant]
     Dosage: 200 MG, DAILY
  3. SOTALOL [Concomitant]
     Dosage: 80 MG, 2X/DAY
  4. ZOLOFT [Concomitant]
     Dosage: 50 MG, DAILY
  5. MONTELUKAST [Concomitant]
     Dosage: 10 MG, DAILY
  6. ACETYLSALICYLIC ACID [Concomitant]
     Dosage: 81 MG, DAILY
  7. WARFARIN [Concomitant]
     Dosage: 4 MG/DAY
  8. TOVIAZ [Suspect]
     Indication: URINARY INCONTINENCE
     Dosage: 4 MG, DAILY
     Route: 048
     Dates: start: 20110123, end: 20110202
  9. LORAZEPAM [Concomitant]
     Dosage: 0.05 MG, DAILY
  10. ADVAIR DISKUS 100/50 [Concomitant]
     Dosage: 250 MG, DAILY
  11. VITAMIN D [Concomitant]
     Dosage: 2000 IU, DAILY
  12. FISH OIL [Concomitant]
     Dosage: 1200 MG, 2X/DAY

REACTIONS (6)
  - BLOOD URINE PRESENT [None]
  - FOOD INTERACTION [None]
  - URINARY TRACT INFECTION [None]
  - DRY MOUTH [None]
  - CONSTIPATION [None]
  - POLLAKIURIA [None]
